FAERS Safety Report 20547053 (Version 1)
Quarter: 2022Q1

REPORT INFORMATION
  Report Type: Report from Study
  Country: CA (occurrence: CA)
  Receive Date: 20220303
  Receipt Date: 20220303
  Transmission Date: 20220423
  Serious: Yes (Other)
  Sender: FDA-Public Use
  Company Number: CA-ABBVIE-22K-028-4299317-00

PATIENT
  Sex: Female

DRUGS (1)
  1. HUMIRA [Suspect]
     Active Substance: ADALIMUMAB
     Indication: Crohn^s disease
     Route: 058
     Dates: start: 20200909

REACTIONS (10)
  - Autoimmune hepatitis [Unknown]
  - Decreased appetite [Unknown]
  - Joint swelling [Unknown]
  - Swelling [Unknown]
  - Dysphagia [Unknown]
  - Juvenile idiopathic arthritis [Unknown]
  - Pain [Unknown]
  - Rash erythematous [Unknown]
  - Peripheral swelling [Unknown]
  - Nausea [Unknown]
